FAERS Safety Report 9744924 (Version 1)
Quarter: 2013Q4

REPORT INFORMATION
  Report Type: Spontaneous
  Country: US (occurrence: US)
  Receive Date: 20131211
  Receipt Date: 20131211
  Transmission Date: 20140711
  Serious: Yes (Other)
  Sender: FDA-Public Use
  Company Number: US-BIOGENIDEC-2013BI116769

PATIENT
  Age: 37 Year
  Sex: Female

DRUGS (14)
  1. TECFIDERA [Suspect]
     Indication: MULTIPLE SCLEROSIS
     Route: 048
     Dates: start: 201307, end: 20131124
  2. ADDERALL [Concomitant]
  3. KLONOPIN [Concomitant]
  4. NEFAZODONE HCL [Concomitant]
  5. EFFEXOR ER [Concomitant]
  6. PREDNISONE [Concomitant]
  7. SORIATANE [Concomitant]
  8. NEXIUM [Concomitant]
  9. LEVOTHYROXINE [Concomitant]
  10. IMITREX [Concomitant]
  11. TOPAMAX [Concomitant]
  12. GABAPENTIN [Concomitant]
  13. TIZANIDINE [Concomitant]
  14. HYDROCODONE [Concomitant]

REACTIONS (5)
  - Grand mal convulsion [Unknown]
  - Flushing [Recovered/Resolved]
  - Abdominal discomfort [Recovered/Resolved]
  - Hypersomnia [Recovered/Resolved]
  - Fall [Recovered/Resolved]
